FAERS Safety Report 7072681-8 (Version None)
Quarter: 2010Q4

REPORT INFORMATION
  Report Type: 
  Country: None (occurrence: None)
  Receive Date: 20101029
  Receipt Date: 20100301
  Transmission Date: 20110411
  Serious: No
  Sender: FDA-Public Use
  Company Number: A0847354A

PATIENT
  Age: 71 Year
  Sex: Female

DRUGS (1)
  1. ADVAIR DISKUS 100/50 [Suspect]
     Indication: PNEUMONIA
     Dosage: 1PUFF TWICE PER DAY
     Route: 055
     Dates: start: 20100222, end: 20100225

REACTIONS (4)
  - HYPOAESTHESIA [None]
  - ILL-DEFINED DISORDER [None]
  - LIMB DISCOMFORT [None]
  - TREMOR [None]
